FAERS Safety Report 5838074-3 (Version None)
Quarter: 2008Q3

REPORT INFORMATION
  Report Type: 
  Country: None (occurrence: None)
  Receive Date: 20080808
  Receipt Date: 20080516
  Transmission Date: 20090109
  Serious: No
  Sender: FDA-Public Use
  Company Number: A0728343A

PATIENT
  Age: 67 Year
  Sex: Female

DRUGS (7)
  1. PAXIL [Suspect]
     Dosage: 40MG PER DAY
     Route: 048
  2. BENADRYL [Suspect]
     Indication: INSOMNIA
     Route: 048
  3. FOSAMAX [Concomitant]
  4. LOVASTATIN [Concomitant]
  5. HYDROCHLOROTHIAZIDE [Concomitant]
  6. DAILY VITAMIN [Concomitant]
  7. CALCIUM SUPPLEMENT [Concomitant]

REACTIONS (5)
  - ANXIETY [None]
  - DYSGEUSIA [None]
  - HUNGER [None]
  - HYPERHIDROSIS [None]
  - THIRST [None]
